FAERS Safety Report 6191774-0 (Version None)
Quarter: 2009Q2

REPORT INFORMATION
  Report Type: 
  Country: None (occurrence: None)
  Receive Date: 20090515
  Receipt Date: 20090504
  Transmission Date: 20091009
  Serious: Yes (Other)
  Sender: FDA-Public Use
  Company Number: US-PFIZER INC-2009195252

PATIENT
  Sex: Male

DRUGS (6)
  1. GEODON [Suspect]
     Indication: DEPRESSION
     Dosage: 20 MG, 2X/DAY
     Route: 048
     Dates: start: 20090319
  2. MAO INHIBITORS [Suspect]
  3. LITHIUM CARBONATE [Concomitant]
  4. SYNTHROID [Concomitant]
     Dosage: 75 UG, 1X/DAY
  5. ZOLPIDEM TARTRATE [Concomitant]
  6. PARNATE [Concomitant]

REACTIONS (2)
  - DRUG INTERACTION [None]
  - HALLUCINATION [None]
